FAERS Safety Report 7833543-9 (Version None)
Quarter: 2011Q4

REPORT INFORMATION
  Report Type: 
  Country: None (occurrence: None)
  Receive Date: 20111024
  Receipt Date: 20111011
  Transmission Date: 20120403
  Serious: Yes (Hospitalization)
  Sender: FDA-Public Use
  Company Number: US-BAYER-2011-011267

PATIENT
  Age: 27 Year
  Sex: Female
  Weight: 54 kg

DRUGS (14)
  1. YASMIN [Suspect]
     Indication: ORAL CONTRACEPTION
     Dosage: UNK
     Dates: start: 20040910, end: 20081101
  2. SYNTHROID [Concomitant]
     Dosage: UNK
     Route: 048
     Dates: start: 20040801, end: 20110701
  3. ADDERALL 5 [Concomitant]
     Dosage: UNK
     Dates: start: 20041001, end: 20071201
  4. REGLAN [Concomitant]
     Dosage: UNK
     Route: 048
     Dates: start: 20041021
  5. DIFIL G [Concomitant]
     Dosage: UNK
     Route: 048
     Dates: start: 20040924
  6. BUT/APAP/CAF-COD [Concomitant]
     Dosage: UNK
     Route: 048
     Dates: start: 20041022
  7. METOCLOPRAM [Concomitant]
     Dosage: UNK
     Route: 048
     Dates: start: 20041019, end: 20041101
  8. KENALOG [Concomitant]
     Dosage: 40 MG, UNK
     Route: 030
     Dates: start: 20040924
  9. DROSPIRENONE AND ETHINYL ESTRADIOL [Suspect]
     Indication: ORAL CONTRACEPTION
     Dosage: UNK
     Dates: start: 20081101, end: 20100101
  10. PREVACID [Concomitant]
     Dosage: 30 MG, UNK
     Route: 048
     Dates: start: 20041013, end: 20041101
  11. MEDENT DM [Concomitant]
     Dosage: UNK
     Route: 048
     Dates: start: 20040924
  12. CELEBREX [Concomitant]
     Dosage: UNK
     Route: 048
     Dates: start: 20040731
  13. AMOXIL [Concomitant]
     Dosage: 500 MG, BID
     Route: 048
     Dates: start: 20040924
  14. REMERON [Concomitant]
     Dosage: UNK
     Route: 048
     Dates: start: 20041021

REACTIONS (2)
  - PAIN [None]
  - CHOLECYSTITIS CHRONIC [None]
